FAERS Safety Report 5652220-6 (Version None)
Quarter: 2008Q1

REPORT INFORMATION
  Report Type: 
  Country: None (occurrence: None)
  Receive Date: 20080304
  Receipt Date: 20080303
  Transmission Date: 20080703
  Serious: Yes (Death, Life-Threatening)
  Sender: FDA-Public Use
  Company Number: 2007SP000595

PATIENT
  Age: 67 Year
  Sex: Male
  Weight: 46 kg

DRUGS (4)
  1. TEMODAL [Suspect]
     Indication: ANAPLASTIC ASTROCYTOMA
     Dosage: 150 MG/M2; QD; PO
     Route: 048
     Dates: start: 20061121, end: 20061125
  2. DECADRON [Concomitant]
  3. GLYCEOL [Concomitant]
  4. EXEGRAN [Concomitant]

REACTIONS (5)
  - CARDIAC DISORDER [None]
  - HYPOTENSION [None]
  - IMMUNODEFICIENCY [None]
  - PNEUMONIA CYTOMEGALOVIRAL [None]
  - URINARY TRACT INFECTION [None]
